FAERS Safety Report 5325963-1 (Version None)
Quarter: 2007Q2

REPORT INFORMATION
  Report Type: 
  Country: None (occurrence: None)
  Receive Date: 20070516
  Receipt Date: 20070515
  Transmission Date: 20071010
  Serious: Yes (Death)
  Sender: FDA-Public Use
  Company Number: US-RB-006101-07

PATIENT
  Age: 40 Year
  Sex: Male

DRUGS (5)
  1. SUBOXONE [Suspect]
     Dosage: UNKNOWN DOSAGE OR STOP DATE
     Route: 048
  2. ROZEREM [Concomitant]
     Indication: INSOMNIA
     Dosage: UNKNOWN DOSAGE
     Route: 048
  3. SEROQUEL [Concomitant]
     Indication: DEPRESSION
     Dosage: UNKNOWN DOSAGE
     Route: 048
  4. WELLBUTRIN [Concomitant]
     Indication: DEPRESSION
     Dosage: UNKNOWN DOSAGE
     Route: 048
  5. LAMICTAL [Concomitant]
     Dosage: UNKNOWN DOSAGE
     Route: 048

REACTIONS (1)
  - FALL [None]
